FAERS Safety Report 20793433 (Version 1)
Quarter: 2022Q2

REPORT INFORMATION
  Report Type: Report from Study
  Country: GB (occurrence: GB)
  Receive Date: 20220506
  Receipt Date: 20220506
  Transmission Date: 20220721
  Serious: Yes (Hospitalization)
  Sender: FDA-Public Use
  Company Number: GB-CELLTRION INC.-2022GB005916

PATIENT

DRUGS (35)
  1. TRASTUZUMAB [Suspect]
     Active Substance: TRASTUZUMAB
     Indication: Breast cancer metastatic
     Dosage: 651 MG, EVERY 3 WEEKS (CUMULATIVE DOSE TO FIRST REACTION:21016.709 MG) (PHARMACEUTICAL DOSE FORM: 23
     Route: 042
     Dates: start: 20171129, end: 20210903
  2. TRASTUZUMAB [Suspect]
     Active Substance: TRASTUZUMAB
     Dosage: 651 MG, EVERY 3 WEEKS (CUMULATIVE DOSE TO FIRST REACTION:21016.709 MG) (PHARMACEUTICAL DOSE FORM: 23
     Route: 042
     Dates: start: 20171129, end: 20210903
  3. TRASTUZUMAB [Suspect]
     Active Substance: TRASTUZUMAB
     Dosage: 882 MG,EVERY 3 WEEKS (CUMULATIVE DOSE TO FIRST REACTION: 29356.25MG) (PHARMACEUTICAL DOSE FORM: 230)
     Route: 042
     Dates: start: 20171108, end: 20171129
  4. TRASTUZUMAB [Suspect]
     Active Substance: TRASTUZUMAB
     Dosage: 882 MG,EVERY 3 WEEKS (CUMULATIVE DOSE TO FIRST REACTION: 29356.25MG) (PHARMACEUTICAL DOSE FORM: 230)
     Route: 042
     Dates: start: 20171108, end: 20171129
  5. TRASTUZUMAB [Suspect]
     Active Substance: TRASTUZUMAB
     Dosage: 600 MG, EVERY 3 WEEKS (CUMULATIVE DOSE TO FIRST REACTION: 21085.715 MG)(PHARMACEUTICAL DOSE FORM: 23
     Route: 058
     Dates: start: 20211015
  6. DOCETAXEL [Suspect]
     Active Substance: DOCETAXEL
     Indication: Breast cancer metastatic
     Dosage: 148 MG, EVERY 3 WEEKS
     Route: 042
     Dates: start: 20171108, end: 20180131
  7. PERTUZUMAB [Suspect]
     Active Substance: PERTUZUMAB
     Indication: Breast cancer metastatic
     Dosage: 840 MILLIGRAM, EVERY 3 WEEKS (CUMULATIVE DOSE TO FIRST REACTION: 27958.334 MG)
     Route: 042
     Dates: start: 20171108, end: 20171129
  8. PERTUZUMAB [Suspect]
     Active Substance: PERTUZUMAB
     Dosage: 840 MILLIGRAM, EVERY 3 WEEKS (CUMULATIVE DOSE TO FIRST REACTION: 27958.334 MG)
     Route: 042
     Dates: start: 20171108, end: 20171129
  9. PERTUZUMAB [Suspect]
     Active Substance: PERTUZUMAB
     Dosage: 840 MILLIGRAM, EVERY 3 WEEKS (CUMULATIVE DOSE TO FIRST REACTION: 27958.334 MG)
     Route: 042
     Dates: start: 20171108, end: 20171129
  10. PERTUZUMAB [Suspect]
     Active Substance: PERTUZUMAB
     Dosage: 600 MILLIGRAM, EVERY 3 WEEKS (CUMULATIVE DOSE TO FIRST REACTION:21085.715 MG)
     Route: 058
     Dates: start: 20211015
  11. PERTUZUMAB [Suspect]
     Active Substance: PERTUZUMAB
     Dosage: 600 MILLIGRAM, EVERY 3 WEEKS (CUMULATIVE DOSE TO FIRST REACTION:21085.715 MG)
     Route: 058
     Dates: start: 20211015
  12. PERTUZUMAB [Suspect]
     Active Substance: PERTUZUMAB
     Dosage: 600 MILLIGRAM, EVERY 3 WEEKS (CUMULATIVE DOSE TO FIRST REACTION:21085.715 MG)
     Route: 058
     Dates: start: 20211015
  13. PERTUZUMAB [Suspect]
     Active Substance: PERTUZUMAB
     Dosage: 420 MILLIGRAM, EVERY 3 WEEKS (CUMULATIVE DOSE TO FIRST REACTION:13559.167MG)(PHARMACEUTICAL DOSE FOR
     Route: 042
     Dates: start: 20171129, end: 20210924
  14. PERTUZUMAB [Suspect]
     Active Substance: PERTUZUMAB
     Dosage: 420 MILLIGRAM, EVERY 3 WEEKS (CUMULATIVE DOSE TO FIRST REACTION:13559.167MG)(PHARMACEUTICAL DOSE FOR
     Route: 042
     Dates: start: 20171129, end: 20210924
  15. PERTUZUMAB [Suspect]
     Active Substance: PERTUZUMAB
     Dosage: 420 MILLIGRAM, EVERY 3 WEEKS (CUMULATIVE DOSE TO FIRST REACTION:13559.167MG)(PHARMACEUTICAL DOSE FOR
     Route: 042
     Dates: start: 20171129, end: 20210924
  16. BECLOMETHASONE DIPROPIONATE [Concomitant]
     Active Substance: BECLOMETHASONE DIPROPIONATE
  17. CLONAZEPAM [Concomitant]
     Active Substance: CLONAZEPAM
  18. ERYTHROMYCIN [Concomitant]
     Active Substance: ERYTHROMYCIN
  19. LACTULOSE [Concomitant]
     Active Substance: LACTULOSE
  20. LINEZOLID [Concomitant]
     Active Substance: LINEZOLID
  21. METFORMIN [Concomitant]
     Active Substance: METFORMIN HYDROCHLORIDE
  22. MORPHINE [Concomitant]
     Active Substance: MORPHINE
     Dosage: 5 MILLIGRAM
     Route: 042
     Dates: start: 20181002, end: 20181002
  23. NITROFURANTOIN [Concomitant]
     Active Substance: NITROFURANTOIN
     Dosage: 200 MG, QD(PHARMACEUTICAL DOSE FORM: 245)
     Route: 048
     Dates: start: 20181103, end: 20181109
  24. OMEPRAZOLE [Concomitant]
     Active Substance: OMEPRAZOLE
  25. ONDANSETRON [Concomitant]
     Active Substance: ONDANSETRON
     Dosage: 4 MG
     Route: 042
     Dates: start: 20181002, end: 20181002
  26. OXYCODONE [Concomitant]
     Active Substance: OXYCODONE
  27. QUETIAPINE [Concomitant]
     Active Substance: QUETIAPINE
     Dosage: UNK
  28. QUETIAPINE [Concomitant]
     Active Substance: QUETIAPINE
     Dosage: UNK
  29. RAMIPRIL [Concomitant]
     Active Substance: RAMIPRIL
  30. ALBUTEROL [Concomitant]
     Active Substance: ALBUTEROL
  31. SIMVASTATIN [Concomitant]
     Active Substance: SIMVASTATIN
  32. SODIUM PICOSULFATE [Concomitant]
     Active Substance: SODIUM PICOSULFATE
  33. VANCOMYCIN [Concomitant]
     Active Substance: VANCOMYCIN
  34. MIRTAZAPINE [Concomitant]
     Active Substance: MIRTAZAPINE
  35. CALCIUM CARBONATE\VITAMIN D [Concomitant]
     Active Substance: CALCIUM CARBONATE\VITAMIN D

REACTIONS (2)
  - Functional gastrointestinal disorder [Recovered/Resolved]
  - Off label use [Unknown]

NARRATIVE: CASE EVENT DATE: 20191008
